FAERS Safety Report 23150631 (Version 1)
Quarter: 2023Q4

REPORT INFORMATION
  Report Type: Spontaneous
  Country: ES (occurrence: ES)
  Receive Date: 20231106
  Receipt Date: 20231106
  Transmission Date: 20240110
  Serious: Yes (Life-Threatening, Hospitalization)
  Sender: FDA-Public Use
  Company Number: ES-ABBVIE-5476470

PATIENT
  Age: 60 Year
  Sex: Male

DRUGS (12)
  1. DALBAVANCIN HYDROCHLORIDE [Suspect]
     Active Substance: DALBAVANCIN HYDROCHLORIDE
     Indication: Endocarditis staphylococcal
     Dosage: 1500 MG/30 MIN
     Route: 042
     Dates: start: 20231020, end: 20231020
  2. KONAKION [Concomitant]
     Active Substance: PHYTONADIONE
     Indication: Short-bowel syndrome
  3. FERROUS SULFATE [Concomitant]
     Active Substance: FERROUS SULFATE
     Indication: Short-bowel syndrome
  4. CYANOCOBALAMIN [Concomitant]
     Active Substance: CYANOCOBALAMIN
     Indication: Short-bowel syndrome
  5. AVANAFIL [Concomitant]
     Active Substance: AVANAFIL
     Indication: Short-bowel syndrome
  6. LEVOTHYROXINE SODIUM [Concomitant]
     Active Substance: LEVOTHYROXINE SODIUM
     Indication: Short-bowel syndrome
  7. LYRICA [Concomitant]
     Active Substance: PREGABALIN
     Indication: Short-bowel syndrome
  8. LIRAGLUTIDE [Concomitant]
     Active Substance: LIRAGLUTIDE
     Indication: Short-bowel syndrome
  9. ERTAPENEM [Concomitant]
     Active Substance: ERTAPENEM
     Indication: Prostatitis Escherichia coli
     Dates: start: 20230921, end: 20231102
  10. DUTASTERIDE\TAMSULOSIN HYDROCHLORIDE [Concomitant]
     Active Substance: DUTASTERIDE\TAMSULOSIN HYDROCHLORIDE
     Indication: Benign prostatic hyperplasia
     Dosage: 0.5/0.4 MG/24H
     Dates: start: 20230921
  11. NEXIUM [Concomitant]
     Active Substance: ESOMEPRAZOLE MAGNESIUM
     Indication: Short-bowel syndrome
  12. CALCIFEDIOL [Concomitant]
     Active Substance: CALCIFEDIOL
     Indication: Short-bowel syndrome

REACTIONS (1)
  - Pyrexia [Recovered/Resolved]

NARRATIVE: CASE EVENT DATE: 20231020
